FAERS Safety Report 26187275 (Version 1)
Quarter: 2025Q4

REPORT INFORMATION
  Report Type: Spontaneous
  Country: CN (occurrence: CN)
  Receive Date: 20251222
  Receipt Date: 20251222
  Transmission Date: 20260118
  Serious: Yes (Hospitalization, Other)
  Sender: DAIICHI
  Company Number: CN-DSJP-DS-2025-183750-CN

PATIENT
  Age: 58 Year
  Sex: Female
  Weight: 36 kg

DRUGS (1)
  1. TRASTUZUMAB DERUXTECAN [Suspect]
     Active Substance: TRASTUZUMAB DERUXTECAN
     Indication: Breast cancer
     Dosage: 200 MG, ONCE EVERY 3 WK
     Route: 041
     Dates: start: 20251110, end: 20251124

REACTIONS (8)
  - Metastases to thorax [Unknown]
  - Metastases to heart [Unknown]
  - Nasal mucosal erosion [Recovering/Resolving]
  - Nasal crusting [Recovering/Resolving]
  - Nasal septum deviation [Recovering/Resolving]
  - Rhinorrhoea [Recovering/Resolving]
  - Epistaxis [Recovering/Resolving]
  - Epistaxis [Recovering/Resolving]

NARRATIVE: CASE EVENT DATE: 20251124
